FAERS Safety Report 22028225 (Version 1)
Quarter: 2023Q1

REPORT INFORMATION
  Report Type: Spontaneous
  Country: US (occurrence: None)
  Receive Date: 20230223
  Receipt Date: 20230223
  Transmission Date: 20230417
  Serious: Yes (Other)
  Sender: FDA-Public Use
  Company Number: US-ROCHE-3052772

PATIENT
  Age: 6 Year
  Sex: Male
  Weight: 19.3 kg

DRUGS (1)
  1. NUTROPIN AQ [Suspect]
     Active Substance: SOMATROPIN
     Indication: Growth hormone deficiency
     Dosage: NO
     Route: 058
     Dates: start: 201903

REACTIONS (2)
  - Vomiting [Recovered/Resolved]
  - Glioma [Not Recovered/Not Resolved]

NARRATIVE: CASE EVENT DATE: 20220309
